FAERS Safety Report 6385120-7 (Version None)
Quarter: 2009Q4

REPORT INFORMATION
  Report Type: 
  Country: None (occurrence: None)
  Receive Date: 20091002
  Receipt Date: 20090923
  Transmission Date: 20100525
  Serious: Yes (Hospitalization, Other)
  Sender: FDA-Public Use
  Company Number: US-ALEXION-A200900777

PATIENT
  Sex: Female

DRUGS (6)
  1. SOLIRIS [Suspect]
     Indication: PAROXYSMAL NOCTURNAL HAEMOGLOBINURIA
     Dosage: 280 MG, SINGLE
     Route: 042
     Dates: start: 20071016, end: 20071016
  2. SOLIRIS [Suspect]
     Dosage: 7 ML, SINGLE
     Route: 042
     Dates: start: 20071017, end: 20071017
  3. SOLIRIS [Suspect]
     Dosage: 600 MG, WEEKLY X 4
     Route: 042
     Dates: start: 20090803
  4. SOLIRIS [Suspect]
     Dosage: 900 MG, UNK
     Route: 042
     Dates: start: 20090831
  5. CYCLOSPORINE [Concomitant]
     Dosage: UNK
     Route: 048
  6. ARIXTRA [Concomitant]
     Dosage: UNK
     Route: 048

REACTIONS (14)
  - ASTHENIA [None]
  - ATRIAL FIBRILLATION [None]
  - BLOOD PRESSURE SYSTOLIC DECREASED [None]
  - CARDIAC DISORDER [None]
  - CONVULSION [None]
  - DEHYDRATION [None]
  - DIZZINESS [None]
  - FATIGUE [None]
  - HAEMOGLOBIN DECREASED [None]
  - HEART RATE DECREASED [None]
  - HOT FLUSH [None]
  - PRESYNCOPE [None]
  - PRURITUS [None]
  - UNRESPONSIVE TO STIMULI [None]
